FAERS Safety Report 16012933 (Version 1)
Quarter: 2019Q1

REPORT INFORMATION
  Report Type: Spontaneous
  Country: US (occurrence: US)
  Receive Date: 20190227
  Receipt Date: 20190227
  Transmission Date: 20190418
  Serious: No
  Sender: FDA-Public Use
  Company Number: None

PATIENT
  Age: 69 Year
  Sex: Female

DRUGS (7)
  1. ATORVASTATIN 80MG [Concomitant]
     Active Substance: ATORVASTATIN
  2. ZETIA [Concomitant]
     Active Substance: EZETIMIBE
  3. COREG 25MG [Concomitant]
  4. CYMBALTA 60 [Concomitant]
  5. ABILIFY [Concomitant]
     Active Substance: ARIPIPRAZOLE
  6. SUTENT [Suspect]
     Active Substance: SUNITINIB MALATE
     Indication: RENAL CANCER
     Route: 048
     Dates: start: 20190202, end: 20190225
  7. JANUMET [Concomitant]
     Active Substance: METFORMIN HYDROCHLORIDE\SITAGLIPTIN PHOSPHATE

REACTIONS (3)
  - Candida infection [None]
  - Fungal infection [None]
  - Therapy cessation [None]

NARRATIVE: CASE EVENT DATE: 20190220
